FAERS Safety Report 18251011 (Version 1)
Quarter: 2020Q3

REPORT INFORMATION
  Report Type: Spontaneous
  Country: US (occurrence: US)
  Receive Date: 20200909
  Receipt Date: 20200909
  Transmission Date: 20201103
  Serious: Yes (Hospitalization)
  Sender: FDA-Public Use
  Company Number: US-JNJFOC-A-NJ2020-206994

PATIENT
  Age: 69 Year
  Sex: Female
  Weight: 99.88 kg

DRUGS (5)
  1. UPTRAVI [Suspect]
     Active Substance: SELEXIPAG
     Indication: PULMONARY ARTERIAL HYPERTENSION
     Route: 048
  2. UPTRAVI [Suspect]
     Active Substance: SELEXIPAG
     Route: 048
  3. LETAIRIS [Concomitant]
     Active Substance: AMBRISENTAN
  4. TADALAFIL. [Concomitant]
     Active Substance: TADALAFIL
  5. DILTIAZEM. [Concomitant]
     Active Substance: DILTIAZEM

REACTIONS (21)
  - Pulmonary arterial hypertension [Unknown]
  - Pain in extremity [Unknown]
  - Pyrexia [Unknown]
  - Pain in jaw [Unknown]
  - Pneumonia [Unknown]
  - Acute respiratory failure [Unknown]
  - Dizziness [Unknown]
  - Wrong dose [Unknown]
  - Chest discomfort [Unknown]
  - Blood pressure abnormal [Unknown]
  - Pulmonary valve stenosis [Unknown]
  - Nausea [Recovering/Resolving]
  - Retching [Recovering/Resolving]
  - Dyspnoea [Unknown]
  - Chills [Unknown]
  - Hypoxia [Unknown]
  - Urinary tract infection [Unknown]
  - Blood pressure increased [Unknown]
  - Nervousness [Unknown]
  - Myalgia [Unknown]
  - Headache [Recovered/Resolved]

NARRATIVE: CASE EVENT DATE: 202007
